FAERS Safety Report 6613310-4 (Version None)
Quarter: 2010Q1

REPORT INFORMATION
  Report Type: 
  Country: None (occurrence: None)
  Receive Date: 20100304
  Receipt Date: 20100222
  Transmission Date: 20100710
  Serious: Yes (Other)
  Sender: FDA-Public Use
  Company Number: PHHY2009IE54742

PATIENT
  Sex: Male
  Weight: 101 kg

DRUGS (2)
  1. CLOZARIL [Suspect]
     Indication: SCHIZOPHRENIA
     Dosage: 450 MG/DAY
     Dates: start: 20040204
  2. EPILIM CHRONO [Suspect]
     Dosage: 400 MG, UNK
     Route: 048
     Dates: start: 20081009

REACTIONS (6)
  - ABDOMINAL PAIN UPPER [None]
  - BLOOD BILIRUBIN INCREASED [None]
  - KIDNEY INFECTION [None]
  - NEUTROPHIL COUNT INCREASED [None]
  - RENAL PAIN [None]
  - WHITE BLOOD CELL COUNT INCREASED [None]
